FAERS Safety Report 9089738 (Version 3)
Quarter: 2013Q1

REPORT INFORMATION
  Report Type: Report from Study
  Country: DE (occurrence: DE)
  Receive Date: 20130201
  Receipt Date: 20130227
  Transmission Date: 20140127
  Serious: Yes (Hospitalization)
  Sender: FDA-Public Use
  Company Number: DE-PFIZER INC-2013028286

PATIENT
  Age: 76 Year
  Sex: 0

DRUGS (6)
  1. TEMSIROLIMUS [Suspect]
     Indication: CENTRAL NERVOUS SYSTEM LYMPHOMA
     Dosage: 75 MG, WEEKLY
     Route: 042
     Dates: start: 20120123
  2. TEMSIROLIMUS [Suspect]
     Dosage: 75 MG, UNK
     Dates: start: 20120130
  3. TEMSIROLIMUS [Suspect]
     Dosage: 75 MG, UNK
     Dates: start: 20120213
  4. LISINOPRIL [Concomitant]
     Dosage: 5 MG, 1X/DAY (1/2 10MG  IN THE EVENING)
  5. AMLODIPINE [Concomitant]
     Dosage: 10 MG, 1X/DAY IN THE MORNING
  6. TAMSULOSIN [Concomitant]
     Dosage: 0.4 MG, 1X/DAY IN THE MORNING

REACTIONS (1)
  - General physical health deterioration [Recovered/Resolved]
